FAERS Safety Report 9912422 (Version 1)
Quarter: 2014Q1

REPORT INFORMATION
  Report Type: Spontaneous
  Country: DE (occurrence: DE)
  Receive Date: 20140220
  Receipt Date: 20140220
  Transmission Date: 20141002
  Serious: Yes (Hospitalization)
  Sender: FDA-Public Use
  Company Number: DE-ROCHE-1346471

PATIENT
  Age: 74 Year
  Sex: Female

DRUGS (1)
  1. MABTHERA [Suspect]
     Indication: CHRONIC LYMPHOCYTIC LEUKAEMIA
     Dosage: 6 SEPARATE DOSES; MOST RECENT DOSE IN DEC/2013
     Route: 042
     Dates: start: 2011

REACTIONS (1)
  - Progressive multifocal leukoencephalopathy [Not Recovered/Not Resolved]
